FAERS Safety Report 13125502 (Version 2)
Quarter: 2017Q1

REPORT INFORMATION
  Report Type: Spontaneous
  Country: US (occurrence: US)
  Receive Date: 20170118
  Receipt Date: 20170308
  Transmission Date: 20170428
  Serious: Yes (Other)
  Sender: FDA-Public Use
  Company Number: US-009507513-1701USA004599

PATIENT
  Age: 70 Year
  Sex: Male
  Weight: 80.73 kg

DRUGS (2)
  1. SYNTHROID [Concomitant]
     Active Substance: LEVOTHYROXINE SODIUM
     Dosage: UNK
  2. KEYTRUDA [Suspect]
     Active Substance: PEMBROLIZUMAB
     Indication: BRAIN NEOPLASM
     Dosage: UNKNOWN DOSAGE/ ^INFUSION EVERY 3 WEEKS^
     Route: 042
     Dates: start: 20160815

REACTIONS (4)
  - Skin exfoliation [Not Recovered/Not Resolved]
  - Product use issue [Unknown]
  - Pruritus [Recovered/Resolved with Sequelae]
  - Rash [Recovered/Resolved with Sequelae]

NARRATIVE: CASE EVENT DATE: 201608
